FAERS Safety Report 6467440-0 (Version None)
Quarter: 2009Q4

REPORT INFORMATION
  Report Type: 
  Country: None (occurrence: None)
  Receive Date: 20091202
  Receipt Date: 20091127
  Transmission Date: 20100525
  Serious: Yes (Hospitalization)
  Sender: FDA-Public Use
  Company Number: B0609032A

PATIENT
  Sex: Female

DRUGS (3)
  1. AUGMENTIN '125' [Suspect]
     Indication: DENTAL CARE
     Route: 048
     Dates: start: 20080101
  2. APRANAX [Concomitant]
     Indication: PAIN
     Route: 048
     Dates: start: 20080101
  3. ZOLOFT [Concomitant]
     Indication: DEPRESSION
     Route: 048

REACTIONS (4)
  - DRUG HYPERSENSITIVITY [None]
  - OROPHARYNGEAL DISCOMFORT [None]
  - PALPITATIONS [None]
  - URTICARIA [None]
